FAERS Safety Report 15315048 (Version 5)
Quarter: 2022Q1

REPORT INFORMATION
  Report Type: Report from Study
  Country: JP (occurrence: JP)
  Receive Date: 20180824
  Receipt Date: 20220325
  Transmission Date: 20220423
  Serious: Yes (Other)
  Sender: FDA-Public Use
  Company Number: JP-VIIV HEALTHCARE ULC-JP2018JPN152861

PATIENT
  Age: 40 Year
  Sex: Male

DRUGS (4)
  1. ABACAVIR SULFATE\DOLUTEGRAVIR SODIUM\LAMIVUDINE [Suspect]
     Active Substance: ABACAVIR SULFATE\DOLUTEGRAVIR SODIUM\LAMIVUDINE
     Indication: HIV infection
     Dosage: 1 DF, 1D
     Route: 048
     Dates: start: 20170312, end: 20220210
  2. DOVATO [Concomitant]
     Active Substance: DOLUTEGRAVIR SODIUM\LAMIVUDINE
     Indication: HIV infection
     Dosage: 1 DF, 1D
     Dates: start: 20220211
  3. BEPOTASTINE BESYLATE [Concomitant]
     Active Substance: BEPOTASTINE BESYLATE
     Dosage: UNK
     Dates: start: 20170219, end: 20170405
  4. CARBOCYSTEINE [Concomitant]
     Active Substance: CARBOCYSTEINE
     Dosage: UNK
     Dates: start: 20170219, end: 20170405

REACTIONS (10)
  - Anal abscess [Recovering/Resolving]
  - Blood triglycerides increased [Recovered/Resolved]
  - Musculoskeletal stiffness [Recovering/Resolving]
  - Anal abscess [Recovering/Resolving]
  - Syphilis [Recovering/Resolving]
  - Facial paralysis [Recovering/Resolving]
  - Rhinitis [Recovering/Resolving]
  - Scrotal inflammation [Recovering/Resolving]
  - Syphilis [Recovering/Resolving]
  - Seasonal allergy [Recovering/Resolving]

NARRATIVE: CASE EVENT DATE: 20170405
